FAERS Safety Report 5134917-X (Version None)
Quarter: 2006Q4

REPORT INFORMATION
  Report Type: 
  Country: None (occurrence: None)
  Receive Date: 20061019
  Receipt Date: 20061005
  Transmission Date: 20070319
  Serious: Yes (Disabling, Other)
  Sender: FDA-Public Use
  Company Number: US200608006874

PATIENT
  Age: 85 Year
  Sex: Female

DRUGS (7)
  1. FORTEO [Suspect]
     Indication: OSTEOPOROSIS
     Dates: start: 20050401
  2. FORTEO [Concomitant]
  3. LEXAPRO  /USA/ (ESCITALOPRAM) [Concomitant]
  4. ATENOLOL [Concomitant]
  5. TRICOR [Concomitant]
  6. NORVASC [Concomitant]
  7. LISINOPRIL [Concomitant]

REACTIONS (4)
  - BLINDNESS [None]
  - CONFUSIONAL STATE [None]
  - PHARMACEUTICAL PRODUCT COMPLAINT [None]
  - TEMPORAL ARTERITIS [None]
